FAERS Safety Report 4379054-7 (Version None)
Quarter: 2004Q2

REPORT INFORMATION
  Report Type: 
  Country: None (occurrence: None)
  Receive Date: 20040615
  Receipt Date: 20040615
  Transmission Date: 20050107
  Serious: Yes (Other)
  Sender: FDA-Public Use
  Company Number: None

PATIENT
  Age: 61 Year
  Sex: Male
  Weight: 89.5 kg

DRUGS (26)
  1. ESTRAMUSTINE  140MG PO BID D1-D5 X 6 WKS X 2 CYCLES [Suspect]
     Indication: PROSTATE CANCER METASTATIC
     Dosage: 140 MG PO BID D1-D- Q6 WKS
     Route: 048
     Dates: start: 20040503, end: 20040507
  2. ESTRAMUSTINE  140MG PO BID D1-D5 X 6 WKS X 2 CYCLES [Suspect]
     Indication: PROSTATE CANCER METASTATIC
     Dosage: 140 MG PO BID D1-D- Q6 WKS
     Route: 048
     Dates: start: 20040510, end: 20040514
  3. ESTRAMUSTINE  140MG PO BID D1-D5 X 6 WKS X 2 CYCLES [Suspect]
     Indication: PROSTATE CANCER METASTATIC
     Dosage: 140 MG PO BID D1-D- Q6 WKS
     Route: 048
     Dates: start: 20040517, end: 20040521
  4. ESTRAMUSTINE  140MG PO BID D1-D5 X 6 WKS X 2 CYCLES [Suspect]
     Indication: PROSTATE CANCER METASTATIC
     Dosage: 140 MG PO BID D1-D- Q6 WKS
     Route: 048
     Dates: start: 20040524, end: 20040528
  5. DOCETAXEL 40 MG /M2 IV D2 WKS 1-6 X 2 CYCLE [Suspect]
     Indication: PROSTATE CANCER METASTATIC
     Dosage: 40 MG /M2 IV D2 WKS 1-6 X 2 CYCLE
     Route: 042
     Dates: start: 20040504
  6. DOCETAXEL 40 MG /M2 IV D2 WKS 1-6 X 2 CYCLE [Suspect]
     Indication: PROSTATE CANCER METASTATIC
     Dosage: 40 MG /M2 IV D2 WKS 1-6 X 2 CYCLE
     Route: 042
     Dates: start: 20040507
  7. DOCETAXEL 40 MG /M2 IV D2 WKS 1-6 X 2 CYCLE [Suspect]
     Indication: PROSTATE CANCER METASTATIC
     Dosage: 40 MG /M2 IV D2 WKS 1-6 X 2 CYCLE
     Route: 042
     Dates: start: 20040518
  8. DOCETAXEL 40 MG /M2 IV D2 WKS 1-6 X 2 CYCLE [Suspect]
     Indication: PROSTATE CANCER METASTATIC
     Dosage: 40 MG /M2 IV D2 WKS 1-6 X 2 CYCLE
     Route: 042
     Dates: start: 20040525
  9. DOCETAXEL 40 MG /M2 IV D2 WKS 1-6 X 2 CYCLE [Suspect]
     Indication: PROSTATE CANCER METASTATIC
     Dosage: 40 MG /M2 IV D2 WKS 1-6 X 2 CYCLE
     Route: 042
     Dates: start: 20040531
  10. DOCETAXEL 40 MG /M2 IV D2 WKS 1-6 X 2 CYCLE [Suspect]
     Indication: PROSTATE CANCER METASTATIC
     Dosage: 40 MG /M2 IV D2 WKS 1-6 X 2 CYCLE
     Route: 042
     Dates: start: 20040601
  11. DOCETAXEL 40 MG /M2 IV D2 WKS 1-6 X 2 CYCLE [Suspect]
     Indication: PROSTATE CANCER METASTATIC
     Dosage: 40 MG /M2 IV D2 WKS 1-6 X 2 CYCLE
     Route: 042
     Dates: start: 20040604
  12. DOCETAXEL 40 MG /M2 IV D2 WKS 1-6 X 2 CYCLE [Suspect]
     Indication: PROSTATE CANCER METASTATIC
     Dosage: 40 MG /M2 IV D2 WKS 1-6 X 2 CYCLE
     Route: 042
     Dates: start: 20040607
  13. DOCETAXEL 40 MG /M2 IV D2 WKS 1-6 X 2 CYCLE [Suspect]
     Indication: PROSTATE CANCER METASTATIC
     Dosage: 40 MG /M2 IV D2 WKS 1-6 X 2 CYCLE
     Route: 042
     Dates: start: 20040608
  14. DOCETAXEL 40 MG /M2 IV D2 WKS 1-6 X 2 CYCLE [Suspect]
     Indication: PROSTATE CANCER METASTATIC
     Dosage: 40 MG /M2 IV D2 WKS 1-6 X 2 CYCLE
     Route: 042
     Dates: start: 20040611
  15. LIPITOR [Concomitant]
  16. LUPRON [Concomitant]
  17. EFFEXOR [Concomitant]
  18. ADVAIR DISKUS 100/50 [Concomitant]
  19. STOOL SOFTENERS [Concomitant]
  20. ASPIRIN [Concomitant]
  21. ANTIEMETICS [Concomitant]
  22. DECADRON [Concomitant]
  23. ZOMETA [Concomitant]
  24. ARANESP [Concomitant]
  25. PAIN MEDICATIONS [Concomitant]
  26. ABSTRACTED BY JW FDA ONSITE REP [Concomitant]

REACTIONS (2)
  - BLOOD CALCIUM DECREASED [None]
  - HAEMATURIA [None]
